FAERS Safety Report 17301185 (Version 1)
Quarter: 2020Q1

REPORT INFORMATION
  Report Type: Spontaneous
  Country: BR (occurrence: BR)
  Receive Date: 20200122
  Receipt Date: 20200122
  Transmission Date: 20200409
  Serious: Yes (Life-Threatening, Other)
  Sender: FDA-Public Use
  Company Number: NVSC2020BR013867

PATIENT
  Sex: Female

DRUGS (1)
  1. DIOVAN [Suspect]
     Active Substance: VALSARTAN
     Indication: SPINOCEREBELLAR ATAXIA
     Dosage: UNK, (10 YEARS AGO)
     Route: 065

REACTIONS (3)
  - Urinary tract infection [Unknown]
  - Product use in unapproved indication [Unknown]
  - Feeling abnormal [Unknown]
